FAERS Safety Report 19182966 (Version 2)
Quarter: 2021Q2

REPORT INFORMATION
  Report Type: Spontaneous
  Country: US (occurrence: US)
  Receive Date: 20210426
  Receipt Date: 20210525
  Transmission Date: 20210717
  Serious: No
  Sender: FDA-Public Use
  Company Number: US-ASTRAZENECA-2021A256008

PATIENT
  Age: 28291 Day
  Sex: Male
  Weight: 98 kg

DRUGS (2)
  1. TUJEO [Concomitant]
     Indication: DIABETES MELLITUS
     Dosage: 5.0IU UNKNOWN
  2. BYDUREON BCISE [Suspect]
     Active Substance: EXENATIDE
     Indication: DIABETES MELLITUS
     Route: 065

REACTIONS (5)
  - Product administration error [Recovered/Resolved]
  - Overdose [Unknown]
  - Incorrect dose administered by device [Unknown]
  - Illness [Unknown]
  - Device malfunction [Unknown]

NARRATIVE: CASE EVENT DATE: 20210321
